FAERS Safety Report 13039156 (Version 6)
Quarter: 2017Q2

REPORT INFORMATION
  Report Type: Report from Study
  Country: BR (occurrence: BR)
  Receive Date: 20161219
  Receipt Date: 20170524
  Transmission Date: 20170830
  Serious: Yes (Other)
  Sender: FDA-Public Use
  Company Number: PHHY2016BR172861

PATIENT
  Sex: Female
  Weight: 56 kg

DRUGS (5)
  1. FOLIC ACID. [Concomitant]
     Active Substance: FOLIC ACID
     Indication: SICKLE CELL ANAEMIA
     Dosage: 10 MG, QD
     Route: 048
     Dates: start: 2002
  2. FOLIC ACID. [Concomitant]
     Active Substance: FOLIC ACID
     Dosage: UNK
  3. HYDREA [Concomitant]
     Active Substance: HYDROXYUREA
     Indication: SICKLE CELL ANAEMIA
     Dosage: 500 MG, TID
     Route: 048
     Dates: start: 2015
  4. EXJADE [Suspect]
     Active Substance: DEFERASIROX
     Indication: SICKLE CELL ANAEMIA
     Dosage: 1875 MG, QD (3 TABLETS OF 500MG, 1 TABLET OF 250MG AND 1 TABLET OF 125 MG TOTAL DOSE OF 1875MG)
     Route: 048
     Dates: start: 20080520
  5. EXJADE [Suspect]
     Active Substance: DEFERASIROX
     Dosage: 2000 MG (4 TABLETS OF 500MG, MORMNING)
     Route: 048

REACTIONS (6)
  - Blindness [Unknown]
  - Cataract [Unknown]
  - Serum ferritin increased [Unknown]
  - Infection [Unknown]
  - Vision blurred [Unknown]
  - Weight decreased [Unknown]

NARRATIVE: CASE EVENT DATE: 2015
